FAERS Safety Report 7558965-5 (Version None)
Quarter: 2011Q2

REPORT INFORMATION
  Report Type: 
  Country: None (occurrence: None)
  Receive Date: 20110621
  Receipt Date: 20110609
  Transmission Date: 20111010
  Serious: Yes (Other)
  Sender: FDA-Public Use
  Company Number: DE-JNJFOC-20110606517

PATIENT
  Age: 35 Year
  Sex: Male

DRUGS (1)
  1. SIMPONI [Suspect]
     Indication: ANKYLOSING SPONDYLITIS
     Route: 058
     Dates: start: 20100101

REACTIONS (3)
  - NASAL INFLAMMATION [None]
  - NEUROPATHY PERIPHERAL [None]
  - FATIGUE [None]
